FAERS Safety Report 16664202 (Version 1)
Quarter: 2019Q3

REPORT INFORMATION
  Report Type: Not Available
  Country: US (occurrence: US)
  Receive Date: 20190802
  Receipt Date: 20190802
  Transmission Date: 20191004
  Serious: Yes (Other)
  Sender: FDA-Public Use
  Company Number: US-ANIPHARMA-2019-US-014100

PATIENT
  Age: 59 Year
  Sex: Male

DRUGS (11)
  1. LEUPROLIDE [Concomitant]
     Active Substance: LEUPROLIDE
     Dosage: 7.5 MG IM AS DIRECTED
     Route: 030
  2. LISINOPRIL. [Concomitant]
     Active Substance: LISINOPRIL
     Dosage: 1 TABLET ORALLY EVERYDAY
     Route: 048
  3. PREDNISONE. [Concomitant]
     Active Substance: PREDNISONE
     Dosage: DAILY. TAKE WITH FOOD TO PREVENT UPSET STOMACH.
     Route: 048
  4. CASODEX [Suspect]
     Active Substance: BICALUTAMIDE
     Indication: PROSTATE CANCER
     Route: 048
     Dates: start: 201605, end: 201806
  5. LEUPROLIDE [Concomitant]
     Active Substance: LEUPROLIDE
     Dosage: 30 MG IM
     Route: 030
  6. METHIMAZOLE. [Concomitant]
     Active Substance: METHIMAZOLE
     Dosage: 3 TABLETS IN THE AM AND 2 TABLETS IN THE PM
     Route: 048
  7. DEXAMETHASONE. [Concomitant]
     Active Substance: DEXAMETHASONE
     Dosage: 8 MG ORALLY AS DIRECTED. 2 TABLETS PO NIGHT BEFORE CHEMOTHERAPY AND 2 TABS MORNING OF CHEMOTHERAPY
     Route: 048
  8. LUPRON DEPOT [Concomitant]
     Active Substance: LEUPROLIDE ACETATE
     Dosage: 30 MG IM
     Route: 030
  9. ONDANSETRON [Concomitant]
     Active Substance: ONDANSETRON
     Dosage: 1 TABLET ORALLY EVERY 8 HOURS AS NEED FOR NAUSEA AND VOMITING
     Route: 048
  10. LUPRON DEPOT [Concomitant]
     Active Substance: LEUPROLIDE ACETATE
     Dosage: 22.5 MG IM
     Route: 030
  11. LIDOCAINE-PRILOCAINE TOPICAL CREAM [Concomitant]
     Dosage: APPLY OVER MEDIPORT 1 HOUR PRIOR TO CHEMOTHERAPY
     Route: 061

REACTIONS (5)
  - Prostatic specific antigen increased [Unknown]
  - Prostate cancer [Unknown]
  - Metastases to prostate [Unknown]
  - Metastases to bone [Unknown]
  - Compression fracture [Unknown]

NARRATIVE: CASE EVENT DATE: 201806
